FAERS Safety Report 15418214 (Version 3)
Quarter: 2018Q4

REPORT INFORMATION
  Report Type: Spontaneous
  Country: US (occurrence: US)
  Receive Date: 20180924
  Receipt Date: 20181004
  Transmission Date: 20190204
  Serious: Yes (Other)
  Sender: FDA-Public Use
  Company Number: US-PFIZER INC-2018382445

PATIENT
  Age: 50 Year
  Sex: Male

DRUGS (9)
  1. UNASYN [AMPICILLIN SODIUM;SULBACTAM SODIUM] [Concomitant]
     Indication: PNEUMONIA
     Dosage: 1.5 G, 4X/DAY (1.5 G Q.I.D)
     Route: 042
  2. ACETAZOLAMIDE. [Concomitant]
     Active Substance: ACETAZOLAMIDE
     Indication: SYRINGOMYELIA
     Dosage: 250 MG, 4X/DAY (250 MG Q.I.D)
     Route: 048
     Dates: start: 1992, end: 19960618
  3. BISACODYL. [Concomitant]
     Active Substance: BISACODYL
     Dosage: 10 MG, DAILY
     Route: 054
  4. ZITHROMAX [Suspect]
     Active Substance: AZITHROMYCIN DIHYDRATE
     Indication: PNEUMONIA
     Dosage: 500 MG, SINGLE (500 MG FOR 1 DOSE)
     Route: 048
  5. ZITHROMAX [Suspect]
     Active Substance: AZITHROMYCIN DIHYDRATE
     Dosage: 250 MG, 1X/DAY (250 MG ONCE-DAILY)
     Route: 048
  6. CEFTAZIDIME. [Concomitant]
     Active Substance: CEFTAZIDIME
     Indication: PNEUMONIA
     Dosage: 1 G, 3X/DAY (1 G Q8H)
     Route: 042
  7. DEXTROSE 5% [Concomitant]
     Active Substance: DEXTROSE
     Dosage: IN NACL 0.45% SOLUTION AT A RATE OF 75 MI/H
     Route: 042
  8. SALBUTAMOL SULFATE [Concomitant]
     Active Substance: ALBUTEROL SULFATE
     Dosage: UNK
     Route: 055
     Dates: start: 19960617
  9. DIAZEPAM. [Concomitant]
     Active Substance: DIAZEPAM
     Dosage: 5 MG, 2X/DAY
     Route: 048

REACTIONS (1)
  - Inappropriate antidiuretic hormone secretion [Recovered/Resolved]

NARRATIVE: CASE EVENT DATE: 19960618
